FAERS Safety Report 9365845 (Version 3)
Quarter: 2013Q3

REPORT INFORMATION
  Report Type: Report from Study
  Country: US (occurrence: US)
  Receive Date: 20130625
  Receipt Date: 20130812
  Transmission Date: 20140515
  Serious: Yes (Hospitalization)
  Sender: FDA-Public Use
  Company Number: PHEH2013US013459

PATIENT
  Age: 71 Year
  Sex: Female

DRUGS (2)
  1. GLEEVEC [Suspect]
     Indication: MALIGNANT MAST CELL NEOPLASM
     Dosage: 1 DF (400 MG), QD
     Route: 048
  2. GLEEVEC [Suspect]
     Dosage: 2 DF (400 MG), QD
     Route: 048

REACTIONS (5)
  - Gastrointestinal disorder [Unknown]
  - Irritable bowel syndrome [Unknown]
  - Malaise [Unknown]
  - Mastocytosis [Unknown]
  - Fatigue [Unknown]
